FAERS Safety Report 16757319 (Version 1)
Quarter: 2019Q3

REPORT INFORMATION
  Report Type: Spontaneous
  Country: ES (occurrence: ES)
  Receive Date: 20190829
  Receipt Date: 20190829
  Transmission Date: 20191005
  Serious: Yes (Hospitalization)
  Sender: FDA-Public Use
  Company Number: ES-TEVA-2019-ES-1099711

PATIENT
  Age: 98 Year
  Sex: Female

DRUGS (3)
  1. AMOXICILINA CLAVULANICO [Suspect]
     Active Substance: AMOXICILLIN\CLAVULANATE POTASSIUM
     Indication: PNEUMONIA ASPIRATION
     Dosage: 1GM
     Route: 048
     Dates: start: 20190130, end: 20190206
  2. LEVOFLOXACINO [Suspect]
     Active Substance: LEVOFLOXACIN
     Indication: PNEUMONIA
     Dosage: 500MG
     Route: 048
     Dates: start: 20190109, end: 20190115
  3. AMOXICILINA CLAVULANICO [Suspect]
     Active Substance: AMOXICILLIN\CLAVULANATE POTASSIUM
     Dosage: 2 GRAMOS CADA 8 HORAS.
     Route: 042
     Dates: start: 20190122, end: 20190129

REACTIONS (2)
  - Acute kidney injury [Recovered/Resolved]
  - Tubulointerstitial nephritis [Recovered/Resolved]

NARRATIVE: CASE EVENT DATE: 20190321
